FAERS Safety Report 15829476 (Version 1)
Quarter: 2019Q1

REPORT INFORMATION
  Report Type: Spontaneous
  Country: US (occurrence: US)
  Receive Date: 20190115
  Receipt Date: 20190115
  Transmission Date: 20190417
  Serious: No
  Sender: FDA-Public Use
  Company Number: US-ALLERGAN-1844954US

PATIENT
  Sex: Female

DRUGS (5)
  1. UNSPECIFIED DRY MOUTH MEDICATION [Concomitant]
     Indication: DRY MOUTH
     Dosage: UNK
     Route: 065
  2. RESTASIS [Suspect]
     Active Substance: CYCLOSPORINE
     Indication: DRY EYE
     Dosage: 2 GTT, BID
     Route: 047
  3. OTHER OTC EYE DROPS (UNSPECIFIED) [Concomitant]
     Indication: DRY EYE
     Dosage: UNK
     Route: 047
  4. REFRESH CELUVISC [Concomitant]
     Indication: DRY EYE
     Dosage: UNK
     Route: 047
  5. REFRESH (UNSPESCIFIED TYPE) [Concomitant]
     Indication: DRY EYE
     Dosage: UNK
     Route: 047

REACTIONS (3)
  - Product container issue [Unknown]
  - Therapeutic response unexpected [Unknown]
  - Pain in extremity [Unknown]
